FAERS Safety Report 18761409 (Version 1)
Quarter: 2021Q1

REPORT INFORMATION
  Report Type: Spontaneous
  Country: US (occurrence: US)
  Receive Date: 20210120
  Receipt Date: 20210120
  Transmission Date: 20210419
  Serious: No
  Sender: FDA-Public Use
  Company Number: US-SA-2021SA015049

PATIENT
  Age: 49 Year
  Sex: Male

DRUGS (2)
  1. FASENRA [Concomitant]
     Active Substance: BENRALIZUMAB
     Dosage: UNK UNK, Q2M
     Route: 065
  2. DUPIXENT [Suspect]
     Active Substance: DUPILUMAB
     Indication: NASAL POLYPS
     Dosage: 300 MG, QOW
     Route: 065
     Dates: start: 20201213

REACTIONS (7)
  - Ocular hyperaemia [Not Recovered/Not Resolved]
  - Hepatic pain [Not Recovered/Not Resolved]
  - Heart rate increased [Not Recovered/Not Resolved]
  - Hypoaesthesia [Not Recovered/Not Resolved]
  - Product dose omission issue [Unknown]
  - Nonalcoholic fatty liver disease [Not Recovered/Not Resolved]
  - Paraesthesia [Not Recovered/Not Resolved]

NARRATIVE: CASE EVENT DATE: 202012
